FAERS Safety Report 21669271 (Version 1)
Quarter: 2022Q4

REPORT INFORMATION
  Report Type: Other
  Country: FR (occurrence: FR)
  Receive Date: 20221201
  Receipt Date: 20221201
  Transmission Date: 20230112
  Serious: Yes (Hospitalization)
  Sender: FDA-Public Use
  Company Number: FR-EUSA PHARMA (UK) LIMITED-2022FR000553

PATIENT

DRUGS (13)
  1. SYLVANT [Suspect]
     Active Substance: SILTUXIMAB
     Indication: Cytokine release syndrome
     Dosage: 1 G, ADMINISTERED ON DAY 4 AND 7.
     Route: 065
  2. VINCRISTINE [Suspect]
     Active Substance: VINCRISTINE
     Indication: B precursor type acute leukaemia
     Dosage: 2 MG, WEEKLY
     Route: 065
  3. METHYLPREDNISOLONE [Suspect]
     Active Substance: METHYLPREDNISOLONE
     Indication: B precursor type acute leukaemia
     Dosage: 1 MILLIGRAM/KILOGRAM, WEEKLY
     Route: 065
  4. TISAGENLECLEUCEL [Suspect]
     Active Substance: TISAGENLECLEUCEL
     Indication: B precursor type acute leukaemia
     Dosage: ADMINISTERED 1.40 X 108 VIABLE CAR T CELLS.
     Route: 050
  5. VORICONAZOLE [Concomitant]
     Active Substance: VORICONAZOLE
     Indication: Bronchopulmonary aspergillosis
     Dosage: UNK
     Route: 065
  6. TOCILIZUMAB [Concomitant]
     Active Substance: TOCILIZUMAB
     Indication: Cytokine release syndrome
     Dosage: 700 MG, ADMINISTERED 2 DOSES ON DAY 3, ONE DOSE ON DAY 4, AND ONE DOSE ON DAY 5.
     Route: 065
  7. DAPTOMYCIN [Concomitant]
     Active Substance: DAPTOMYCIN
     Indication: Bronchopulmonary aspergillosis
     Dosage: UNK
     Route: 065
  8. DEXAMETHASONE [Concomitant]
     Active Substance: DEXAMETHASONE
     Indication: Cytokine release syndrome
     Dosage: 10 MG, ADMINISTERED FOR 2 DOSES ON DAY 3.
     Route: 065
  9. NOREPINEPHRINE [Concomitant]
     Active Substance: NOREPINEPHRINE
     Indication: Cytokine release syndrome
     Dosage: UNK
     Route: 065
  10. AMPHOTERICIN B [Concomitant]
     Active Substance: AMPHOTERICIN B
     Indication: Bronchopulmonary aspergillosis
     Dosage: UNK
     Route: 065
  11. FLUDARABINE [Concomitant]
     Active Substance: FLUDARABINE PHOSPHATE
     Indication: B precursor type acute leukaemia
     Dosage: 30 MG/M2, ADMINISTERED ON DAY 6 TO 3.
     Route: 065
  12. CYCLOPHOSPHAMIDE [Concomitant]
     Active Substance: CYCLOPHOSPHAMIDE
     Indication: B precursor type acute leukaemia
     Dosage: 500 MG/M2, ADMINISTERED ON DAY 6 TO 5.
     Route: 065
  13. IMIPENEM [Concomitant]
     Active Substance: IMIPENEM
     Indication: Bronchopulmonary aspergillosis
     Dosage: UNK
     Route: 065

REACTIONS (9)
  - Hepatosplenomegaly [Recovering/Resolving]
  - Disseminated intravascular coagulation [Recovering/Resolving]
  - Pulmonary mass [Recovering/Resolving]
  - Pericardial effusion [Recovering/Resolving]
  - Pleural effusion [Recovering/Resolving]
  - Hyperferritinaemia [Recovering/Resolving]
  - Bronchopulmonary aspergillosis [Recovering/Resolving]
  - Drug ineffective [Unknown]
  - Off label use [Unknown]
